FAERS Safety Report 10796032 (Version 1)
Quarter: 2015Q1

REPORT INFORMATION
  Report Type: Report from Study
  Country: US (occurrence: US)
  Receive Date: 20150216
  Receipt Date: 20150216
  Transmission Date: 20150721
  Serious: Yes (Other)
  Sender: FDA-Public Use
  Company Number: US-ROCHE-1535320

PATIENT

DRUGS (3)
  1. TEMOZOLOMIDE. [Suspect]
     Active Substance: TEMOZOLOMIDE
     Indication: GLIOBLASTOMA
     Route: 065
  2. BEVACIZUMAB [Suspect]
     Active Substance: BEVACIZUMAB
     Indication: GLIOBLASTOMA
     Route: 065
  3. IRINOTECAN [Suspect]
     Active Substance: IRINOTECAN
     Indication: GLIOBLASTOMA
     Route: 065

REACTIONS (10)
  - Cerebrovascular accident [Unknown]
  - Bone marrow failure [Unknown]
  - Gastrointestinal perforation [Unknown]
  - Hypertension [Unknown]
  - Deep vein thrombosis [Unknown]
  - Pulmonary embolism [Unknown]
  - Impaired healing [Unknown]
  - Venous thrombosis [Unknown]
  - Pancreatitis [Unknown]
  - Diverticulitis [Unknown]
